FAERS Safety Report 26185794 (Version 1)
Quarter: 2025Q4

REPORT INFORMATION
  Report Type: Spontaneous
  Country: US (occurrence: None)
  Receive Date: 20251220
  Receipt Date: 20251220
  Transmission Date: 20260118
  Serious: Yes (Hospitalization)
  Sender: FDA-CTU
  Company Number: None

PATIENT
  Age: 64 Year
  Sex: Female

DRUGS (1)
  1. CEFTRIAXONE [Suspect]
     Active Substance: CEFTRIAXONE

REACTIONS (3)
  - Hypotension [None]
  - Dialysis related complication [None]
  - Unresponsive to stimuli [None]

NARRATIVE: CASE EVENT DATE: 20251215
